FAERS Safety Report 6385730-7 (Version None)
Quarter: 2009Q4

REPORT INFORMATION
  Report Type: 
  Country: None (occurrence: None)
  Receive Date: 20091002
  Receipt Date: 20081003
  Transmission Date: 20100525
  Serious: No
  Sender: FDA-Public Use
  Company Number: US-ASTRAZENECA-2008UW21663

PATIENT
  Age: 74 Year
  Sex: Female

DRUGS (2)
  1. ARIMIDEX [Suspect]
     Route: 048
     Dates: start: 20050401
  2. FOSAMAX [Concomitant]
     Dates: start: 19880101

REACTIONS (7)
  - CARPAL TUNNEL SYNDROME [None]
  - CRYING [None]
  - EMOTIONAL DISORDER [None]
  - FALL [None]
  - HYPERHIDROSIS [None]
  - HYPOAESTHESIA [None]
  - MEMORY IMPAIRMENT [None]
